FAERS Safety Report 20665542 (Version 1)
Quarter: 2022Q2

REPORT INFORMATION
  Report Type: Report from Study
  Country: TW (occurrence: TW)
  Receive Date: 20220402
  Receipt Date: 20220402
  Transmission Date: 20220721
  Serious: Yes (Hospitalization, Other)
  Sender: FDA-Public Use
  Company Number: TW-BRISTOL-MYERS SQUIBB COMPANY-BMS-2021-144838

PATIENT
  Sex: Male

DRUGS (30)
  1. NIVOLUMAB [Suspect]
     Active Substance: NIVOLUMAB
     Indication: Oesophageal squamous cell carcinoma
     Dosage: 480 MILLIGRAM
     Route: 042
     Dates: start: 20210429, end: 20210429
  2. NIVOLUMAB [Suspect]
     Active Substance: NIVOLUMAB
     Dosage: 480 MILLIGRAM
     Route: 042
     Dates: start: 20210622, end: 20210622
  3. NIVOLUMAB [Suspect]
     Active Substance: NIVOLUMAB
     Dosage: 480 MILLIGRAM
     Route: 042
     Dates: start: 20210720, end: 20210720
  4. NIVOLUMAB [Suspect]
     Active Substance: NIVOLUMAB
     Dosage: 480 MILLIGRAM
     Route: 042
     Dates: start: 20210914, end: 20210914
  5. NIVOLUMAB [Suspect]
     Active Substance: NIVOLUMAB
     Dosage: 480 MILLIGRAM
     Route: 042
     Dates: start: 20211012, end: 20211012
  6. NIVOLUMAB [Suspect]
     Active Substance: NIVOLUMAB
     Dosage: 480 MILLIGRAM
     Route: 042
     Dates: start: 20220104, end: 20220104
  7. NIVOLUMAB [Suspect]
     Active Substance: NIVOLUMAB
     Route: 042
     Dates: start: 20220204, end: 20220204
  8. NIVOLUMAB [Suspect]
     Active Substance: NIVOLUMAB
     Route: 042
     Dates: start: 20220304, end: 20220304
  9. REGORAFENIB [Suspect]
     Active Substance: REGORAFENIB
     Indication: Oesophageal squamous cell carcinoma
     Dosage: 90 MILLIGRAM
     Route: 048
     Dates: start: 20210429, end: 20210511
  10. REGORAFENIB [Suspect]
     Active Substance: REGORAFENIB
     Dosage: 60 MILLIGRAM
     Route: 048
     Dates: start: 20210608, end: 20210616
  11. REGORAFENIB [Suspect]
     Active Substance: REGORAFENIB
     Dosage: 60 MILLIGRAM
     Route: 048
     Dates: start: 20210617, end: 20210619
  12. REGORAFENIB [Suspect]
     Active Substance: REGORAFENIB
     Dosage: 30 MILLIGRAM
     Route: 048
     Dates: start: 20210620
  13. REGORAFENIB [Suspect]
     Active Substance: REGORAFENIB
     Dosage: 60 MILLIGRAM
     Route: 048
     Dates: start: 20210622, end: 20210712
  14. REGORAFENIB [Suspect]
     Active Substance: REGORAFENIB
     Dosage: 60 MILLIGRAM
     Route: 048
     Dates: start: 20210720, end: 20210809
  15. REGORAFENIB [Suspect]
     Active Substance: REGORAFENIB
     Dosage: 60 MILLIGRAM
     Route: 048
     Dates: start: 20210817, end: 20210906
  16. REGORAFENIB [Suspect]
     Active Substance: REGORAFENIB
     Dosage: 60 MILLIGRAM
     Route: 048
     Dates: start: 20210914, end: 20211004
  17. REGORAFENIB [Suspect]
     Active Substance: REGORAFENIB
     Dosage: 60 MILLIGRAM
     Route: 048
     Dates: start: 20211012, end: 20211029
  18. REGORAFENIB [Suspect]
     Active Substance: REGORAFENIB
     Dosage: 60 MILLIGRAM
     Route: 048
     Dates: start: 20211109, end: 20211129
  19. REGORAFENIB [Suspect]
     Active Substance: REGORAFENIB
     Dosage: 60 MILLIGRAM
     Route: 048
     Dates: start: 20211207
  20. REGORAFENIB [Suspect]
     Active Substance: REGORAFENIB
     Dosage: 60 MILLIGRAM
     Route: 048
     Dates: start: 20220104, end: 20220124
  21. REGORAFENIB [Suspect]
     Active Substance: REGORAFENIB
     Route: 048
     Dates: start: 20220204, end: 20220224
  22. REGORAFENIB [Suspect]
     Active Substance: REGORAFENIB
     Route: 048
     Dates: start: 20220307
  23. NIVOLUMAB [Suspect]
     Active Substance: NIVOLUMAB
     Indication: Oesophageal squamous cell carcinoma
     Dosage: 480 MILLIGRAM
     Route: 042
     Dates: start: 20210720, end: 20210720
  24. NIVOLUMAB [Suspect]
     Active Substance: NIVOLUMAB
     Dosage: 480 MILLIGRAM
     Route: 042
     Dates: start: 20210622, end: 20210622
  25. NIVOLUMAB [Suspect]
     Active Substance: NIVOLUMAB
     Dosage: 480 MILLIGRAM
     Route: 042
     Dates: start: 20211012, end: 20211012
  26. NIVOLUMAB [Suspect]
     Active Substance: NIVOLUMAB
     Dosage: 480 MILLIGRAM
     Route: 042
     Dates: start: 20210914, end: 20210914
  27. NIVOLUMAB [Suspect]
     Active Substance: NIVOLUMAB
     Dosage: 480 MILLIGRAM
     Route: 042
     Dates: start: 20210429, end: 20210429
  28. NIVOLUMAB [Suspect]
     Active Substance: NIVOLUMAB
     Dosage: 480 MILLIGRAM
     Route: 042
     Dates: start: 20220104, end: 20220104
  29. INSULIN ASPART [Concomitant]
     Active Substance: INSULIN ASPART
     Indication: Prophylaxis
     Dates: start: 20211207
  30. INSULIN ASPART [Concomitant]
     Active Substance: INSULIN ASPART
     Dosage: UNK
     Route: 065
     Dates: start: 20211207

REACTIONS (1)
  - Diabetes mellitus [Not Recovered/Not Resolved]

NARRATIVE: CASE EVENT DATE: 20211030
